FAERS Safety Report 12172837 (Version 2)
Quarter: 2016Q2

REPORT INFORMATION
  Report Type: Spontaneous
  Country: US (occurrence: US)
  Receive Date: 20160311
  Receipt Date: 20160415
  Transmission Date: 20160815
  Serious: No
  Sender: FDA-Public Use
  Company Number: US-PFIZER INC-2016098342

PATIENT
  Age: 66 Year
  Sex: Female
  Weight: 59 kg

DRUGS (4)
  1. LYRICA [Suspect]
     Active Substance: PREGABALIN
     Indication: SPINAL COLUMN STENOSIS
     Dosage: 50 MG, 2X/DAY
     Route: 048
  2. HORIZANT [Suspect]
     Active Substance: GABAPENTIN ENACARBIL
     Indication: NEURALGIA
     Dosage: 3X/DAY
     Dates: end: 2015
  3. LYRICA [Suspect]
     Active Substance: PREGABALIN
     Indication: NEURALGIA
     Dosage: 50 MG, 3X/DAY
     Route: 048
     Dates: start: 201507
  4. LYRICA [Suspect]
     Active Substance: PREGABALIN
     Dosage: 50 MG, 1X/DAY
     Route: 048

REACTIONS (7)
  - Drug ineffective [Unknown]
  - Vision blurred [Recovering/Resolving]
  - Somnolence [Recovered/Resolved]
  - Intentional product misuse [Unknown]
  - Nervousness [Recovered/Resolved]
  - Impaired driving ability [Recovering/Resolving]
  - Dizziness [Recovered/Resolved]
